FAERS Safety Report 22081509 (Version 3)
Quarter: 2023Q2

REPORT INFORMATION
  Report Type: Spontaneous
  Country: US (occurrence: US)
  Receive Date: 20230310
  Receipt Date: 20230413
  Transmission Date: 20230722
  Serious: Yes (Other)
  Sender: FDA-Public Use
  Company Number: US-SA-SAC20230308000545

PATIENT
  Sex: Female

DRUGS (1)
  1. DUPIXENT [Suspect]
     Active Substance: DUPILUMAB
     Indication: Dermatitis atopic
     Dosage: 300 MG, QOW
     Route: 058
     Dates: start: 202106

REACTIONS (8)
  - Cellulitis [Unknown]
  - Thrombosis [Unknown]
  - Pain in extremity [Unknown]
  - Joint swelling [Unknown]
  - Chest pain [Unknown]
  - Dyspnoea [Unknown]
  - Lymphadenopathy [Unknown]
  - Feeling hot [Unknown]
